FAERS Safety Report 7167414-0 (Version None)
Quarter: 2010Q4

REPORT INFORMATION
  Report Type: 
  Country: None (occurrence: None)
  Receive Date: 20101216
  Receipt Date: 20091125
  Transmission Date: 20110411
  Serious: No
  Sender: FDA-Public Use
  Company Number: A0828394A

PATIENT
  Age: 49 Year
  Sex: Female

DRUGS (2)
  1. NICOTINE POLACRILEX [Suspect]
     Dates: start: 20091122, end: 20091125
  2. MELATONIN [Concomitant]

REACTIONS (6)
  - AGITATION [None]
  - ERYTHEMA [None]
  - HYPERSENSITIVITY [None]
  - PALLOR [None]
  - PRURITUS [None]
  - WOUND [None]
